FAERS Safety Report 11523330 (Version 1)
Quarter: 2015Q3

REPORT INFORMATION
  Report Type: Spontaneous
  Country: US (occurrence: US)
  Receive Date: 20150918
  Receipt Date: 20150918
  Transmission Date: 20151125
  Serious: No
  Sender: FDA-Public Use
  Company Number: US-TAKEDA-2015TUS012446

PATIENT
  Age: 58 Year
  Sex: Female
  Weight: 77.98 kg

DRUGS (6)
  1. DEXILANT [Suspect]
     Active Substance: DEXLANSOPRAZOLE
     Dosage: UNK
     Route: 048
     Dates: start: 20150820, end: 20150823
  2. DEXILANT [Suspect]
     Active Substance: DEXLANSOPRAZOLE
     Indication: GASTROOESOPHAGEAL REFLUX DISEASE
     Dosage: UNK
     Route: 048
     Dates: start: 20150714, end: 20150804
  3. DEXILANT [Suspect]
     Active Substance: DEXLANSOPRAZOLE
     Dosage: UNK
     Route: 048
     Dates: start: 20150804, end: 20150813
  4. CALCIUM [Concomitant]
     Active Substance: CALCIUM
     Indication: SUPPLEMENTATION THERAPY
     Dosage: 750 MG, UNK
     Dates: start: 201503
  5. TOCOPHEROL [Concomitant]
     Active Substance: TOCOPHEROL
     Indication: BLOOD CHOLESTEROL
     Dosage: 200 IU, UNK
     Route: 048
     Dates: start: 2013
  6. KELP                               /00082201/ [Concomitant]
     Dosage: 150 MG, UNK
     Route: 048
     Dates: start: 2014

REACTIONS (2)
  - Diarrhoea [Recovered/Resolved]
  - Abdominal discomfort [Recovered/Resolved]

NARRATIVE: CASE EVENT DATE: 201507
